FAERS Safety Report 9076423 (Version 1)
Quarter: 2013Q1

REPORT INFORMATION
  Report Type: Report from Study
  Country: US (occurrence: US)
  Receive Date: 20130129
  Receipt Date: 20130129
  Transmission Date: 20140127
  Serious: No
  Sender: FDA-Public Use
  Company Number: US-ABBOTT-12P-163-0945620-00

PATIENT
  Sex: Male

DRUGS (4)
  1. HUMIRA 40 MG/0.8 ML PEN [Suspect]
     Indication: PSORIASIS
  2. BLOOD PRESSURE MEDICATION FOR YEARS [Concomitant]
     Indication: BLOOD PRESSURE
  3. BLOOD PRESSURE MEDICATION FOR YEARS [Concomitant]
     Indication: BLOOD CHOLESTEROL
  4. CHOLESTEROL MEDICATION FOR YEARS [Concomitant]
     Indication: BLOOD CHOLESTEROL

REACTIONS (3)
  - Injection site pain [Recovered/Resolved]
  - Needle issue [Unknown]
  - Incorrect dose administered [Unknown]
